FAERS Safety Report 15704180 (Version 1)
Quarter: 2018Q4

REPORT INFORMATION
  Report Type: Spontaneous
  Country: US (occurrence: US)
  Receive Date: 20181210
  Receipt Date: 20181210
  Transmission Date: 20190205
  Serious: Yes (Hospitalization, Other)
  Sender: FDA-Public Use
  Company Number: US-APOTEX-2018AP026213

PATIENT
  Age: 44 Year
  Sex: Female

DRUGS (4)
  1. FLUTICASONE. [Suspect]
     Active Substance: FLUTICASONE
     Indication: ASTHMA
     Dosage: 1 PUFF, BID
     Route: 045
  2. CIPROFLOXACIN. [Suspect]
     Active Substance: CIPROFLOXACIN
     Indication: PNEUMONIA
     Dosage: 2 DF OF 400 MG
     Route: 042
  3. LEVOFLOXACIN TABLETS [Suspect]
     Active Substance: LEVOFLOXACIN
     Dosage: 500 MG, ONCE EVERY 48 HOURS
     Route: 065
  4. LEVOFLOXACIN TABLETS [Suspect]
     Active Substance: LEVOFLOXACIN
     Indication: PNEUMONIA
     Dosage: 2 DF, UNK
     Route: 065

REACTIONS (2)
  - Ectropion [Recovered/Resolved]
  - Tendon rupture [Recovered/Resolved]
